FAERS Safety Report 25348625 (Version 2)
Quarter: 2025Q3

REPORT INFORMATION
  Report Type: Spontaneous
  Country: US (occurrence: US)
  Receive Date: 20250522
  Receipt Date: 20250720
  Transmission Date: 20251020
  Serious: No
  Sender: IPSEN BIOPHARMACEUTICALS, INC.
  Company Number: US-IPSEN Group, Research and Development-2025-12073

PATIENT
  Sex: Male

DRUGS (10)
  1. SOMATULINE DEPOT [Suspect]
     Active Substance: LANREOTIDE ACETATE
     Indication: Acromegaly
     Dosage: UNDER THE SKIN
     Dates: start: 20230306
  2. CABERGOLINE [Concomitant]
     Active Substance: CABERGOLINE
  3. CARBAMAZEPINE [Concomitant]
     Active Substance: CARBAMAZEPINE
  4. LAMOTRIGINE [Concomitant]
     Active Substance: LAMOTRIGINE
  5. LEVETIRACETAM [Concomitant]
     Active Substance: LEVETIRACETAM
  6. LEVOTHYROXINE [Concomitant]
     Active Substance: LEVOTHYROXINE
  7. MOUNJARO [Concomitant]
     Active Substance: TIRZEPATIDE
     Dosage: INJECT 15 MG BY SUBCUTANEOUS ROUTE ONCE WEEKLY
  8. ROSUVASTATIN [Concomitant]
     Active Substance: ROSUVASTATIN
  9. SOMAVERT [Concomitant]
     Active Substance: PEGVISOMANT
     Dosage: INJECT 30 MG BY SUBCUTANEOUS ROUTE ONCE DAILY IN THE ABDOMEN, THIGH, UPPER OUTER AREAS OF BUTTOCKS, OR OUTER AREA OF UPPER ARM (ROTATE SITE)
  10. TESTOSTERONE CYPIONATE [Concomitant]
     Active Substance: TESTOSTERONE CYPIONATE

REACTIONS (3)
  - Laboratory test abnormal [Unknown]
  - Off label use [Unknown]
  - Inappropriate schedule of product administration [Unknown]
